FAERS Safety Report 13386388 (Version 2)
Quarter: 2018Q4

REPORT INFORMATION
  Report Type: Spontaneous
  Country: CA (occurrence: CA)
  Receive Date: 20170330
  Receipt Date: 20181207
  Transmission Date: 20190204
  Serious: Yes (Other)
  Sender: FDA-Public Use
  Company Number: CA-SA-2016SA152974

PATIENT
  Age: 75 Year
  Sex: Female

DRUGS (13)
  1. ARAVA [Concomitant]
     Active Substance: LEFLUNOMIDE
     Dosage: 20 MG,UNK
     Route: 065
  2. PLAQUENIL [Suspect]
     Active Substance: HYDROXYCHLOROQUINE SULFATE
     Dosage: UNK UNK,UNK
     Route: 065
     Dates: start: 2000, end: 20081021
  3. METHOTREXATE SODIUM. [Suspect]
     Active Substance: METHOTREXATE SODIUM
     Indication: RHEUMATOID ARTHRITIS
     Dosage: UNK
     Dates: start: 2000, end: 20010714
  4. REMICADE [Suspect]
     Active Substance: INFLIXIMAB
     Dosage: UNK UNK,UNK
     Route: 042
     Dates: start: 20130616, end: 20140929
  5. RITUXAN [Suspect]
     Active Substance: RITUXIMAB
     Dosage: UNK UNK,UNK
     Route: 042
     Dates: start: 20141127, end: 20151228
  6. SULFASALAZINE. [Suspect]
     Active Substance: SULFASALAZINE
     Indication: RHEUMATOID ARTHRITIS
     Dosage: 500 MG, BID
     Route: 048
  7. ENBREL [Suspect]
     Active Substance: ETANERCEPT
     Indication: RHEUMATOID ARTHRITIS
     Dosage: UNK UNK,UNK
     Route: 065
     Dates: start: 200610, end: 201107
  8. HYDROXYCHLOROQUINE [Suspect]
     Active Substance: HYDROXYCHLOROQUINE
  9. HYDROXYCHLOROQUINE SULFATE. [Suspect]
     Active Substance: HYDROXYCHLOROQUINE SULFATE
  10. XELJANZ [Suspect]
     Active Substance: TOFACITINIB CITRATE
     Indication: RHEUMATOID ARTHRITIS
     Dosage: 5 MG,BID
     Route: 048
     Dates: start: 20160615
  11. ARAVA [Concomitant]
     Active Substance: LEFLUNOMIDE
     Dosage: 20 MG,QD
     Route: 065
     Dates: start: 20110714
  12. ORENCIA [Suspect]
     Active Substance: ABATACEPT
     Dosage: UNK UNK,UNK
     Dates: start: 20111228, end: 20130411
  13. CELEBREX [Suspect]
     Active Substance: CELECOXIB
     Indication: RHEUMATOID ARTHRITIS
     Dosage: 200 MG, BID
     Route: 048

REACTIONS (5)
  - C-reactive protein increased [Unknown]
  - Cataract [Unknown]
  - Laboratory test abnormal [Unknown]
  - Drug ineffective [Unknown]
  - Red blood cell sedimentation rate abnormal [Unknown]
